FAERS Safety Report 9770613 (Version 2)
Quarter: 2014Q1

REPORT INFORMATION
  Report Type: Spontaneous
  Country: JM (occurrence: JM)
  Receive Date: 20131218
  Receipt Date: 20140114
  Transmission Date: 20141002
  Serious: Yes (Hospitalization)
  Sender: FDA-Public Use
  Company Number: JM-GLAXOSMITHKLINE-A1053736A

PATIENT
  Age: 77 Year
  Sex: Male

DRUGS (1)
  1. AVODART [Suspect]
     Indication: BENIGN PROSTATIC HYPERPLASIA
     Dosage: 1MG PER DAY
     Route: 048

REACTIONS (3)
  - Syncope [Recovered/Resolved]
  - Overdose [Recovered/Resolved]
  - Drug prescribing error [Recovered/Resolved]
